FAERS Safety Report 6165345-6 (Version None)
Quarter: 2009Q2

REPORT INFORMATION
  Report Type: 
  Country: None (occurrence: None)
  Receive Date: 20090423
  Receipt Date: 20090415
  Transmission Date: 20091009
  Serious: Yes (Other)
  Sender: FDA-Public Use
  Company Number: GB-JNJFOC-20090404189

PATIENT
  Age: 53 Year
  Sex: Female

DRUGS (7)
  1. REMICADE [Suspect]
     Indication: PSORIASIS
     Route: 042
  2. CITALOPRAM HYDROBROMIDE [Concomitant]
  3. ATARAX [Concomitant]
  4. OXYCONTIN [Concomitant]
  5. RANITIDINE [Concomitant]
  6. AMITRIPTLINE HYDROCHLORIDE TAB [Concomitant]
  7. PRAVASTATIN [Concomitant]
     Indication: DYSLIPIDAEMIA

REACTIONS (1)
  - BREAST CANCER [None]
